FAERS Safety Report 8000847-9 (Version None)
Quarter: 2011Q4

REPORT INFORMATION
  Report Type: 
  Country: None (occurrence: None)
  Receive Date: 20111222
  Receipt Date: 20110524
  Transmission Date: 20120403
  Serious: No
  Sender: FDA-Public Use
  Company Number: US-VIIV HEALTHCARE LIMITED-A0928955A

PATIENT
  Age: 50 Year
  Sex: Male

DRUGS (7)
  1. CIMETIDINE [Concomitant]
  2. BYSTOLIC [Concomitant]
  3. WELLBUTRIN [Concomitant]
  4. TRIZIVIR [Suspect]
     Indication: HIV INFECTION
     Dosage: 1TAB TWICE PER DAY
     Route: 048
     Dates: start: 20030101
  5. HYDROCHLOROTHIAZIDE [Concomitant]
  6. LISINOPRIL [Concomitant]
  7. STRATTERA [Concomitant]

REACTIONS (1)
  - RENAL IMPAIRMENT [None]
